FAERS Safety Report 19653583 (Version 6)
Quarter: 2021Q4

REPORT INFORMATION
  Report Type: Report from Study
  Country: US (occurrence: US)
  Receive Date: 20210804
  Receipt Date: 20211231
  Transmission Date: 20220303
  Serious: No
  Sender: FDA-Public Use
  Company Number: NVSC2021US167203

PATIENT
  Sex: Male

DRUGS (1)
  1. COSENTYX [Suspect]
     Active Substance: SECUKINUMAB
     Indication: Psoriasis
     Dosage: 300 MG, Q4W(EVERY FOUR WEEKS)
     Route: 058

REACTIONS (11)
  - Skin irritation [Unknown]
  - Panic attack [Unknown]
  - Muscle spasms [Unknown]
  - Nasal congestion [Recovered/Resolved]
  - Abdominal pain lower [Unknown]
  - Hot flush [Unknown]
  - Injection site pain [Unknown]
  - Nausea [Unknown]
  - Skin plaque [Unknown]
  - Diarrhoea [Unknown]
  - Drug ineffective [Unknown]
